FAERS Safety Report 8791439 (Version 2)
Quarter: 2012Q4

REPORT INFORMATION
  Report Type: Spontaneous
  Country: US (occurrence: None)
  Receive Date: 20120911
  Receipt Date: 20120913
  Transmission Date: 20130627
  Serious: Yes (Hospitalization)
  Sender: FDA-Public Use
  Company Number: JPI-P-024931

PATIENT
  Age: 63 Year
  Sex: Female
  Weight: 62.6 kg

DRUGS (8)
  1. XYREM (500 MILLIGRAM/ MILLILITERS, SOLUTION) (SODIUM OXYBATE) [Suspect]
     Indication: NARCOLEPSY
     Route: 048
     Dates: start: 200908
  2. XYREM (500 MILLIGRAM/ MILLILITERS, SOLUTION) (SODIUM OXYBATE) [Suspect]
     Indication: NARCOLEPSY
     Dosage: (4.5 gm,2 in 1 d)
     Route: 048
  3. XYREM (500 MILLIGRAM/ MILLILITERS, SOLUTION) (SODIUM OXYBATE) [Suspect]
     Indication: NARCOLEPSY
     Dosage: (3.75 gm,2 in 1 d)
     Route: 048
  4. DIURECTIC [Suspect]
     Indication: DIURETIC THERAPY
     Dates: end: 201207
  5. AMLODIPINE [Concomitant]
  6. BENAZEPRIL [Concomitant]
  7. ALPRAZOLAM [Concomitant]
  8. ASPIRIN [Concomitant]

REACTIONS (6)
  - Dizziness [None]
  - Hypotension [None]
  - Dehydration [None]
  - Weight decreased [None]
  - Nausea [None]
  - Abdominal discomfort [None]
